FAERS Safety Report 15260711 (Version 1)
Quarter: 2018Q3

REPORT INFORMATION
  Report Type: Spontaneous
  Country: US (occurrence: US)
  Receive Date: 20180719
  Receipt Date: 20180719
  Transmission Date: 20181010
  Serious: No
  Sender: FDA-Public Use
  Company Number: None

PATIENT
  Age: 56 Year
  Sex: Female
  Weight: 51.75 kg

DRUGS (7)
  1. B VITAMINS [Concomitant]
     Active Substance: CYANOCOBALAMIN\DEXPANTHENOL\NIACINAMIDE\PYRIDOXINE HYDROCHLORIDE\RIBOFLAVIN 5^-PHOSPHATE SODIUM\THIAMINE HYDROCHLORIDE\VITAMIN B COMPLEX
  2. MINOCYCLINE [Concomitant]
     Active Substance: MINOCYCLINE\MINOCYCLINE HYDROCHLORIDE
  3. TINADIZOLE [Concomitant]
  4. XEOMIN [Suspect]
     Active Substance: INCOBOTULINUMTOXINA
     Indication: SKIN DISORDER
     Dosage: ?          OTHER FREQUENCY:ONCE;?
     Route: 058
     Dates: start: 20180712, end: 20180712
  5. ZITHROMAX [Concomitant]
     Active Substance: AZITHROMYCIN DIHYDRATE
  6. VITAMIN D [Concomitant]
     Active Substance: CHOLECALCIFEROL
  7. VITAMIN K [Concomitant]
     Active Substance: PHYTONADIONE

REACTIONS (5)
  - Hyperhidrosis [None]
  - Headache [None]
  - Feeling hot [None]
  - Fatigue [None]
  - Nausea [None]

NARRATIVE: CASE EVENT DATE: 20180712
